FAERS Safety Report 25500349 (Version 2)
Quarter: 2025Q3

REPORT INFORMATION
  Report Type: Spontaneous
  Country: JP (occurrence: JP)
  Receive Date: 20250701
  Receipt Date: 20250716
  Transmission Date: 20251020
  Serious: Yes (Other)
  Sender: Phathom Pharmaceuticals
  Company Number: JP-PHATHOM PHARMACEUTICALS INC.-2025PHT01618

PATIENT
  Age: 66 Year
  Sex: Female

DRUGS (1)
  1. VONOPRAZAN FUMARATE [Suspect]
     Active Substance: VONOPRAZAN FUMARATE
     Indication: Gastrooesophageal reflux disease
     Dosage: 20 MG, 1X/DAY
     Route: 048
     Dates: end: 20250602

REACTIONS (2)
  - Anaemia [Unknown]
  - Gastrointestinal polyp haemorrhage [Unknown]

NARRATIVE: CASE EVENT DATE: 20250602
